FAERS Safety Report 16660000 (Version 1)
Quarter: 2019Q3

REPORT INFORMATION
  Report Type: Spontaneous
  Country: US (occurrence: US)
  Receive Date: 20190618
  Receipt Date: 20190618
  Transmission Date: 20191004
  Serious: No
  Sender: FDA-Public Use
  Company Number: None

PATIENT
  Age: 80 Year
  Sex: Male
  Weight: 106.59 kg

DRUGS (7)
  1. CASODEX [Concomitant]
     Active Substance: BICALUTAMIDE
  2. MAXZIDE [Concomitant]
     Active Substance: HYDROCHLOROTHIAZIDE\TRIAMTERENE
  3. TRIAMCINOLONE [Concomitant]
     Active Substance: TRIAMCINOLONE
  4. ASPIRIN. [Concomitant]
     Active Substance: ASPIRIN
  5. INFLECTRA [Concomitant]
     Active Substance: INFLIXIMAB-DYYB
  6. PREDNISONE. [Concomitant]
     Active Substance: PREDNISONE
  7. ZYTIGA [Suspect]
     Active Substance: ABIRATERONE ACETATE
     Indication: PROSTATE CANCER
     Route: 048

REACTIONS (1)
  - Hot flush [None]
